FAERS Safety Report 23910755 (Version 1)
Quarter: 2024Q2

REPORT INFORMATION
  Report Type: Spontaneous
  Country: US (occurrence: US)
  Receive Date: 20240528
  Receipt Date: 20240528
  Transmission Date: 20240717
  Serious: No
  Sender: FDA-Public Use
  Company Number: US-AVADEL CNS PHARMACEUTICALS, LLC-2024AVA00285

PATIENT
  Sex: Male

DRUGS (6)
  1. LUMRYZ [Suspect]
     Active Substance: SODIUM OXYBATE
     Dosage: 9 G, ONCE NIGHTLY
     Dates: start: 202401, end: 2024
  2. LUMRYZ [Suspect]
     Active Substance: SODIUM OXYBATE
     Dosage: UNK DOSE DECREASED
     Dates: start: 2024, end: 2024
  3. LISINOPRIL [Concomitant]
     Active Substance: LISINOPRIL
     Dosage: UNK
  4. METFORMIN [Concomitant]
     Active Substance: METFORMIN HYDROCHLORIDE
     Dosage: UNK
  5. SUNOSI [Concomitant]
     Active Substance: SOLRIAMFETOL
     Dosage: UNK
  6. SYNTHROID [Concomitant]
     Active Substance: LEVOTHYROXINE SODIUM
     Dosage: UNK

REACTIONS (1)
  - Feeling abnormal [Unknown]

NARRATIVE: CASE EVENT DATE: 20240101
